FAERS Safety Report 11987859 (Version 1)
Quarter: 2016Q1

REPORT INFORMATION
  Report Type: Spontaneous
  Country: US (occurrence: US)
  Receive Date: 20160202
  Receipt Date: 20160202
  Transmission Date: 20160526
  Serious: Yes (Hospitalization)
  Sender: FDA-Public Use
  Company Number: US-BAUSCH-BL-2015-029871

PATIENT
  Age: 68 Year
  Sex: Male

DRUGS (1)
  1. PROVENGE [Suspect]
     Active Substance: SIPULEUCEL-T
     Indication: PROSTATE CANCER
     Route: 042
     Dates: start: 20151211, end: 20151211

REACTIONS (4)
  - Hospitalisation [Unknown]
  - Dizziness [Recovered/Resolved]
  - Neutrophil count abnormal [Unknown]
  - Hypotension [Recovered/Resolved]

NARRATIVE: CASE EVENT DATE: 20151208
